FAERS Safety Report 20155766 (Version 1)
Quarter: 2021Q4

REPORT INFORMATION
  Report Type: Spontaneous
  Country: ES (occurrence: ES)
  Receive Date: 20211207
  Receipt Date: 20211207
  Transmission Date: 20220303
  Serious: Yes (Other)
  Sender: FDA-Public Use
  Company Number: None

PATIENT
  Age: 64 Year
  Sex: Male

DRUGS (1)
  1. TAMSULOSIN [Suspect]
     Active Substance: TAMSULOSIN
     Indication: Dysuria
     Dosage: UNK (0.4 MG C/24 H)
     Route: 048
     Dates: start: 20210926

REACTIONS (2)
  - Angioedema [Recovered/Resolved]
  - Dry throat [Recovering/Resolving]

NARRATIVE: CASE EVENT DATE: 20211001
